FAERS Safety Report 16693136 (Version 1)
Quarter: 2019Q4

REPORT INFORMATION
  Report Type: Spontaneous
  Country: US (occurrence: US)
  Receive Date: 20190811
  Receipt Date: 20190811
  Transmission Date: 20200122
  Serious: Yes (Disabling)
  Sender: FDA-Public Use
  Company Number: None

PATIENT
  Age: 13 Year
  Sex: Female
  Weight: 50.4 kg

DRUGS (4)
  1. MONTELUKAST SOD. 5 MG. TAB CHEW./GENERIC FOR: SINGULAIR 5 MG. TAB CHEW [Suspect]
     Active Substance: MONTELUKAST SODIUM
     Indication: ASTHMA
     Dosage: ?          QUANTITY:1 TABLET(S);?
     Route: 048
     Dates: start: 20170904, end: 20190802
  2. MONTELUKAST SOD. 5 MG. TAB CHEW./GENERIC FOR: SINGULAIR 5 MG. TAB CHEW [Suspect]
     Active Substance: MONTELUKAST SODIUM
     Indication: HYPERSENSITIVITY
     Dosage: ?          QUANTITY:1 TABLET(S);?
     Route: 048
     Dates: start: 20170904, end: 20190802
  3. AUVI-Q AUTO-INJECTOR [Concomitant]
  4. PRO-AIR RESPICLICK INHALER [Concomitant]

REACTIONS (3)
  - Crying [None]
  - Anger [None]
  - Depression [None]

NARRATIVE: CASE EVENT DATE: 20190726
